FAERS Safety Report 18030347 (Version 1)
Quarter: 2020Q3

REPORT INFORMATION
  Report Type: Spontaneous
  Country: JP (occurrence: JP)
  Receive Date: 20200716
  Receipt Date: 20200716
  Transmission Date: 20201103
  Serious: Yes (Other)
  Sender: FDA-Public Use
  Company Number: JP-ALVOGEN-2020-ALVOGEN-109015

PATIENT
  Age: 2 Year
  Sex: Female

DRUGS (6)
  1. ETOPOSIDE. [Suspect]
     Active Substance: ETOPOSIDE
     Indication: NEUROBLASTOMA
  2. MELPHALAN. [Suspect]
     Active Substance: MELPHALAN
     Indication: NEUROBLASTOMA
     Dosage: DISTRIBUTED OVER 2?3 CONSECUTIVE DAYS
  3. DALTEPARIN SODIUM [Concomitant]
     Active Substance: DALTEPARIN SODIUM
     Dosage: 75 INTERNATIONAL UNITS/KG/D
  4. CARBOPLATIN. [Suspect]
     Active Substance: CARBOPLATIN
     Indication: NEUROBLASTOMA
  5. HEPARIN?FRACTION/LOW MOLECULAR WEIGHT HEPARIN [Concomitant]
     Indication: PROPHYLAXIS
     Dosage: INFUSED 1 DAY BEFORE HDCT TO 30 DAYS AFTER STEM CELL RESCUE
  6. GRANULOCYTE COLONY STIMULATING FACTOR [Concomitant]
     Active Substance: GRANULOCYTE COLONY-STIMULATING FACTOR NOS
     Indication: WHITE BLOOD CELL COUNT DECREASED
     Dosage: 5 DAYS AFTER THE STEM CELL RESCUE UNTIL THE WBC WAS }1000/MICROLITER.
     Route: 042

REACTIONS (1)
  - Gastrointestinal mucosal disorder [Unknown]
